FAERS Safety Report 7550433-X (Version None)
Quarter: 2011Q2

REPORT INFORMATION
  Report Type: 
  Country: None (occurrence: None)
  Receive Date: 20110615
  Receipt Date: 20100730
  Transmission Date: 20111010
  Serious: No
  Sender: FDA-Public Use
  Company Number: US-BAUSCH-2010BL004205

PATIENT
  Age: 7 Day
  Sex: Male

DRUGS (1)
  1. GENTAMICIN SULFATE [Suspect]
     Route: 047
     Dates: start: 20100729, end: 20100730

REACTIONS (2)
  - DRUG DISPENSING ERROR [None]
  - LETHARGY [None]
